FAERS Safety Report 16571690 (Version 2)
Quarter: 2019Q3

REPORT INFORMATION
  Report Type: Spontaneous
  Country: SK (occurrence: SK)
  Receive Date: 20190715
  Receipt Date: 20190821
  Transmission Date: 20191004
  Serious: Yes (Hospitalization)
  Sender: FDA-Public Use
  Company Number: SK-PFIZER INC-2019297812

PATIENT
  Age: 69 Year
  Sex: Male

DRUGS (1)
  1. XALKORI [Suspect]
     Active Substance: CRIZOTINIB
     Indication: NON-SMALL CELL LUNG CANCER
     Dosage: 250 MG, UNK
     Dates: start: 201902

REACTIONS (4)
  - Mental disorder [Recovering/Resolving]
  - Intentional self-injury [Recovering/Resolving]
  - Aggression [Recovering/Resolving]
  - Nervousness [Recovering/Resolving]
